FAERS Safety Report 4588117-2 (Version None)
Quarter: 2005Q1

REPORT INFORMATION
  Report Type: 
  Country: None (occurrence: None)
  Receive Date: 20050216
  Receipt Date: 20050207
  Transmission Date: 20050727
  Serious: Yes (Death, Other)
  Sender: FDA-Public Use
  Company Number: 2004-09-1592

PATIENT
  Age: 70 Year
  Sex: Male
  Weight: 52 kg

DRUGS (10)
  1. INTRON A [Suspect]
     Indication: HEPATITIS C
     Dosage: SEE IMAGE
     Route: 030
     Dates: start: 20040416, end: 20040428
  2. INTRON A [Suspect]
     Indication: HEPATITIS C
     Dosage: SEE IMAGE
     Route: 030
     Dates: start: 20040416, end: 20040522
  3. INTRON A [Suspect]
     Indication: HEPATITIS C
     Dosage: SEE IMAGE
     Route: 030
     Dates: start: 20040506, end: 20040522
  4. REBETOL [Suspect]
     Indication: HEPATITIS C
     Dosage: 600 MG ORAL
     Route: 048
     Dates: start: 20040416, end: 20040522
  5. STRONG NEO-MINOPHAGEN [Suspect]
  6. SOLDEM [Concomitant]
  7. HALCION [Concomitant]
  8. PERSANTIN [Concomitant]
  9. FELODIPINE [Concomitant]
  10. DEAMELIN-S [Concomitant]

REACTIONS (6)
  - BLOOD GLUCOSE INCREASED [None]
  - BLOOD PRESSURE SYSTOLIC INCREASED [None]
  - CARDIAC FAILURE [None]
  - CEREBRAL INFARCTION [None]
  - EPILEPSY [None]
  - PERIPHERAL COLDNESS [None]
